FAERS Safety Report 6068931-7 (Version None)
Quarter: 2009Q1

REPORT INFORMATION
  Report Type: 
  Country: None (occurrence: None)
  Receive Date: 20090206
  Receipt Date: 20090129
  Transmission Date: 20090719
  Serious: Yes (Death)
  Sender: FDA-Public Use
  Company Number: IE-SANOFI-SYNTHELABO-A01200901017

PATIENT
  Age: 89 Year
  Sex: Male

DRUGS (3)
  1. CLEXANE [Concomitant]
     Indication: MYOCARDIAL INFARCTION
     Dosage: UNK
     Route: 065
     Dates: start: 20090101
  2. PLAVIX [Suspect]
     Indication: MYOCARDIAL INFARCTION
     Dosage: 300 MG ONCE FOLLOWED BY 75 MG DAILY
     Route: 048
     Dates: start: 20090101
  3. ASPIRIN [Concomitant]
     Indication: MYOCARDIAL INFARCTION
     Dosage: 300 MG ONCE FOLLOWED BY 75 MG DAILY
     Route: 065
     Dates: start: 20090101

REACTIONS (3)
  - HAEMATURIA [None]
  - MELAENA [None]
  - MYOCARDIAL INFARCTION [None]
